FAERS Safety Report 9645881 (Version 2)
Quarter: 2013Q4

REPORT INFORMATION
  Report Type: Spontaneous
  Country: US (occurrence: US)
  Receive Date: 20131025
  Receipt Date: 20131205
  Transmission Date: 20140711
  Serious: Yes (Other)
  Sender: FDA-Public Use
  Company Number: US-ASTRAZENECA-2013SE77309

PATIENT
  Age: 68 Year
  Sex: Female
  Weight: 64.4 kg

DRUGS (10)
  1. SYMBICORT [Suspect]
     Indication: ASTHMA
     Dosage: 160/4.5 2 PUFFS BID
     Route: 055
     Dates: start: 2008
  2. COUMADIN [Concomitant]
     Indication: GASTROINTESTINAL TUBE INSERTION
     Dosage: 5MG 2 TIMES WEEK
     Route: 048
     Dates: start: 2008
  3. PRIMIDONE [Concomitant]
     Indication: CONVULSION
     Route: 048
  4. ACIPHEX [Concomitant]
     Indication: ABDOMINAL DISCOMFORT
     Route: 048
  5. CALTRATE [Concomitant]
     Indication: SUPPLEMENTATION THERAPY
     Dosage: 600D DAILY
     Route: 048
  6. CALCIUM WITH VITAMIN D3 [Concomitant]
     Indication: SUPPLEMENTATION THERAPY
     Dosage: 12000MG/1000IU DAILY
     Route: 048
  7. WOMENS DAILY VITAMIN [Concomitant]
     Indication: SUPPLEMENTATION THERAPY
     Dosage: 1 TABLET DAILY
     Route: 048
  8. VENTOLIN HFA [Concomitant]
     Indication: RESPIRATORY DISORDER
     Dosage: 2 PUFFS QID
     Route: 055
     Dates: start: 2008
  9. PRESER VISION [Concomitant]
     Indication: CATARACT
     Dosage: 1 CAPSULE DAILY
     Route: 061
     Dates: start: 2011
  10. LEVOTHYROXINE [Concomitant]
     Indication: THYROID DISORDER
     Dosage: 125MCG DAILY
     Route: 048
     Dates: start: 2012

REACTIONS (3)
  - Cataract [Not Recovered/Not Resolved]
  - Epistaxis [Not Recovered/Not Resolved]
  - Drug dose omission [Not Recovered/Not Resolved]
